FAERS Safety Report 21113553 (Version 1)
Quarter: 2022Q3

REPORT INFORMATION
  Report Type: Spontaneous
  Country: US (occurrence: None)
  Receive Date: 20220721
  Receipt Date: 20220721
  Transmission Date: 20221026
  Serious: Yes (Other)
  Sender: FDA-Public Use
  Company Number: None

PATIENT
  Age: 20 Year
  Sex: Female
  Weight: 50.35 kg

DRUGS (5)
  1. DOXYLAMINE [Suspect]
     Active Substance: DOXYLAMINE
     Indication: Nausea
     Dosage: FREQUENCY : AS NEEDED;?
     Route: 048
     Dates: start: 20220602
  2. DOXYLAMINE [Suspect]
     Active Substance: DOXYLAMINE
     Indication: Vomiting
  3. PYRIDOXINE [Suspect]
     Active Substance: PYRIDOXINE
     Indication: Nausea
     Dates: start: 20220602
  4. PYRIDOXINE [Suspect]
     Active Substance: PYRIDOXINE
     Indication: Vomiting
  5. VITAMINS [Concomitant]
     Active Substance: VITAMINS

REACTIONS (1)
  - Shortened cervix [None]

NARRATIVE: CASE EVENT DATE: 20220613
